FAERS Safety Report 4512523-5 (Version None)
Quarter: 2004Q4

REPORT INFORMATION
  Report Type: 
  Country: None (occurrence: None)
  Receive Date: 20041008
  Receipt Date: 20040902
  Transmission Date: 20050328
  Serious: Yes (Other)
  Sender: FDA-Public Use
  Company Number: 379796

PATIENT
  Sex: 0

DRUGS (5)
  1. FUZEON [Suspect]
     Indication: DRUG USE FOR UNKNOWN INDICATION
     Dosage: 180 MG DAILY SUBCUTANEOUS
     Route: 058
     Dates: start: 20030714, end: 20031113
  2. NORVIR [Suspect]
     Indication: DRUG USE FOR UNKNOWN INDICATION
     Dosage: 400 MG DAILY ORAL
     Route: 048
     Dates: start: 20030714, end: 20031113
  3. EPIVIR [Suspect]
     Indication: DRUG USE FOR UNKNOWN INDICATION
     Dosage: 300 MG DAILY, ORAL
     Route: 048
     Dates: start: 20030714, end: 20031113
  4. VIDEX [Suspect]
     Indication: DRUG USE FOR UNKNOWN INDICATION
     Dosage: 250 MG DAILY ORAL
     Route: 048
     Dates: start: 20030714, end: 20031113
  5. TIPRANAVIR (TIPRANAVIR) [Suspect]
     Indication: DRUG USE FOR UNKNOWN INDICATION
     Dosage: 1000 MG DAILY ORAL
     Route: 048
     Dates: start: 20030714, end: 20031113

REACTIONS (1)
  - ABORTION INDUCED [None]
